FAERS Safety Report 6558723-4 (Version None)
Quarter: 2010Q1

REPORT INFORMATION
  Report Type: 
  Country: None (occurrence: None)
  Receive Date: 20100129
  Receipt Date: 20100120
  Transmission Date: 20100710
  Serious: Yes (Other)
  Sender: FDA-Public Use
  Company Number: JP-PFIZER INC-2010008784

PATIENT

DRUGS (3)
  1. NORVASC [Suspect]
     Route: 048
  2. ARTIST [Suspect]
     Route: 048
  3. LASIX [Suspect]
     Route: 048

REACTIONS (1)
  - HYPONATRAEMIA [None]
